FAERS Safety Report 6988058-7 (Version None)
Quarter: 2010Q3

REPORT INFORMATION
  Report Type: 
  Country: None (occurrence: None)
  Receive Date: 20100916
  Receipt Date: 20100910
  Transmission Date: 20110219
  Serious: Yes (Hospitalization)
  Sender: FDA-Public Use
  Company Number: A0880678A

PATIENT
  Age: 86 Year
  Sex: Female

DRUGS (9)
  1. LUXIQ [Suspect]
     Indication: PSORIASIS
     Route: 061
     Dates: start: 20100901, end: 20100901
  2. BLOOD PRESSURE MEDICATION [Concomitant]
  3. COUMADIN [Concomitant]
  4. WARFARIN SODIUM [Concomitant]
  5. UNKNOWN [Concomitant]
  6. FUROSEMIDE [Concomitant]
  7. PLAVIX [Concomitant]
  8. UNKNOWN [Concomitant]
  9. LISINOPRIL [Concomitant]

REACTIONS (1)
  - TACHYCARDIA [None]
